FAERS Safety Report 5745996-0 (Version None)
Quarter: 2008Q2

REPORT INFORMATION
  Report Type: 
  Country: None (occurrence: None)
  Receive Date: 20080520
  Receipt Date: 20080501
  Transmission Date: 20081010
  Serious: Yes (Hospitalization)
  Sender: FDA-Public Use
  Company Number: ALA_00037_2008

PATIENT
  Age: 42 Year
  Sex: Female

DRUGS (4)
  1. MESALAMINE [Suspect]
     Indication: COLITIS ULCERATIVE
     Dosage: (800 MG TID)
  2. BENAZEPRIL HYDROCHLORIDE [Concomitant]
  3. METFORMIN HCL [Concomitant]
  4. CLONAZEPAM [Concomitant]

REACTIONS (6)
  - ELECTROCARDIOGRAM ST SEGMENT ELEVATION [None]
  - LEFT VENTRICULAR DYSFUNCTION [None]
  - MITRAL VALVE INCOMPETENCE [None]
  - MYOCARDITIS [None]
  - PULMONARY HYPERTENSION [None]
  - VIRAL MYOCARDITIS [None]
